FAERS Safety Report 5286050-4 (Version None)
Quarter: 2007Q2

REPORT INFORMATION
  Report Type: 
  Country: None (occurrence: None)
  Receive Date: 20070404
  Receipt Date: 20070329
  Transmission Date: 20071010
  Serious: Yes (Hospitalization)
  Sender: FDA-Public Use
  Company Number: PE-BRISTOL-MYERS SQUIBB COMPANY-13719760

PATIENT
  Age: 60 Year
  Sex: Female

DRUGS (2)
  1. ABATACEPT [Suspect]
     Indication: RHEUMATOID ARTHRITIS
     Route: 042
     Dates: start: 20030506, end: 20070206
  2. AZATHIOPRINE [Concomitant]
     Dates: start: 19960513, end: 20070313

REACTIONS (1)
  - GASTRIC ULCER [None]
